FAERS Safety Report 4513308-6 (Version None)
Quarter: 2004Q4

REPORT INFORMATION
  Report Type: 
  Country: None (occurrence: None)
  Receive Date: 20041130
  Receipt Date: 20040716
  Transmission Date: 20050328
  Serious: Yes (Disabling)
  Sender: FDA-Public Use
  Company Number: US-BRISTOL-MYERS SQUIBB COMPANY-12643375

PATIENT
  Age: 68 Year
  Sex: Male

DRUGS (6)
  1. ERBITUX [Suspect]
     Indication: COLON CANCER METASTATIC
     Route: 042
     Dates: start: 20040623, end: 20040623
  2. ANZEMET [Concomitant]
     Indication: PREMEDICATION
     Route: 048
     Dates: start: 20040623, end: 20040623
  3. ATROPINE [Concomitant]
     Indication: PREMEDICATION
     Dates: start: 20040623, end: 20040623
  4. BENADRYL [Concomitant]
     Indication: PREMEDICATION
     Route: 042
     Dates: start: 20040623, end: 20040623
  5. CAMPTOSAR [Concomitant]
     Route: 042
     Dates: start: 20040623, end: 20040623
  6. DECADRON [Concomitant]
     Indication: PREMEDICATION
     Route: 042
     Dates: start: 20040623, end: 20040623

REACTIONS (3)
  - MEDICATION ERROR [None]
  - OVERDOSE [None]
  - RASH [None]
